FAERS Safety Report 10192476 (Version 1)
Quarter: 2014Q2

REPORT INFORMATION
  Report Type: Spontaneous
  Country: US (occurrence: US)
  Receive Date: 20140523
  Receipt Date: 20140523
  Transmission Date: 20141212
  Serious: No
  Sender: FDA-Public Use
  Company Number: US-BAUSCH-BL-2013-003486

PATIENT
  Age: 93 Year
  Sex: Female
  Weight: 46.76 kg

DRUGS (8)
  1. IPRATROPIUM BROMIDE NASAL SOLUTION 0.03% [Suspect]
     Indication: HYPERSENSITIVITY
     Dosage: 2 SPRAYS IN EACH NOSTRIL; THREE TIMES DAILY; NASAL
     Route: 045
     Dates: start: 201301, end: 201301
  2. IPRATROPIUM BROMIDE NASAL SOLUTION 0.03% [Suspect]
     Indication: RHINORRHOEA
  3. RANIBIZUMAB [Concomitant]
  4. ASCORBIC ACID/ZINC OXIDE/CUPRIC OXIDE/BETACAROTENE/DL-ALPHA TOCOPHERYL ACETATE [Concomitant]
     Indication: VITAMIN SUPPLEMENTATION
  5. VALSARTAN [Concomitant]
     Indication: HYPERTENSION
  6. ESTRADIOL [Concomitant]
     Indication: MENOPAUSE
  7. ERGOCALCIFEROL [Concomitant]
  8. BECLOMETASONE DIPROPIONATE [Concomitant]
     Indication: MULTIPLE ALLERGIES

REACTIONS (2)
  - Dry eye [Recovered/Resolved]
  - Nasal congestion [Recovered/Resolved]
